FAERS Safety Report 7223680-4 (Version None)
Quarter: 2011Q1

REPORT INFORMATION
  Report Type: 
  Country: None (occurrence: None)
  Receive Date: 20110112
  Receipt Date: 20101014
  Transmission Date: 20110831
  Serious: No
  Sender: FDA-Public Use
  Company Number: US-ALLERGAN-1013222US

PATIENT
  Age: 54 Year
  Sex: Female

DRUGS (3)
  1. RESTASIS [Suspect]
     Indication: DRY EYE
     Dosage: 1 GTT, BID
     Route: 047
     Dates: start: 20100901, end: 20101002
  2. AROMASIN [Concomitant]
     Indication: BREAST CANCER
  3. BLOOD PRESSURE MEDS (NOS) [Concomitant]
     Indication: BLOOD PRESSURE

REACTIONS (2)
  - DYSPNOEA [None]
  - SINUS CONGESTION [None]
